FAERS Safety Report 5767818-4 (Version None)
Quarter: 2008Q2

REPORT INFORMATION
  Report Type: 
  Country: None (occurrence: None)
  Receive Date: 20080612
  Receipt Date: 20080603
  Transmission Date: 20081010
  Serious: Yes (Other)
  Sender: FDA-Public Use
  Company Number: PHMT2007CA01840

PATIENT
  Sex: Female

DRUGS (4)
  1. SANDOSTATIN LAR [Suspect]
     Indication: CARCINOID TUMOUR
     Dosage: 20 MG, QMO
     Route: 030
     Dates: start: 20050727
  2. ALTACE [Concomitant]
     Indication: HYPERTENSION
     Dosage: 5 MG DIE
  3. LIPITOR [Concomitant]
     Indication: HYPERCHOLESTEROLAEMIA
     Dosage: 10 MG DIE
  4. APO-FUROSEMIDE [Concomitant]
     Dosage: 10 MG DAILY

REACTIONS (6)
  - BRAIN SCAN ABNORMAL [None]
  - HEPATIC NEOPLASM [None]
  - LIVER OPERATION [None]
  - MENINGIOMA [None]
  - ROAD TRAFFIC ACCIDENT [None]
  - VOMITING [None]
